FAERS Safety Report 6847410-0 (Version None)
Quarter: 2010Q3

REPORT INFORMATION
  Report Type: 
  Country: None (occurrence: None)
  Receive Date: 20100713
  Receipt Date: 20100628
  Transmission Date: 20110219
  Serious: Yes (Other)
  Sender: FDA-Public Use
  Company Number: 2010MA000384

PATIENT
  Sex: Female

DRUGS (11)
  1. NIFEDIPINE [Suspect]
     Indication: HYPERTENSION
     Dosage: 30 MG;
  2. TEGRETOL [Suspect]
     Indication: EPILEPSY
     Dosage: 800 MG; BID;
     Dates: start: 20070101
  3. TEGRETOL [Suspect]
     Indication: TRIGEMINAL NEURALGIA
     Dosage: 800 MG; BID;
     Dates: start: 20070101
  4. CALCICHEW (CALCIUM CARBONATE) [Suspect]
  5. BUMETANIDE [Suspect]
     Indication: HYPERTENSION
     Dosage: 2 MG;
  6. AMITRIPTYLINE HCL [Suspect]
     Dosage: 50 MG;
  7. METHOTREXATE [Concomitant]
  8. ATORVASTATIN [Concomitant]
  9. LOSARTAN POSTASSIUM [Concomitant]
  10. PREDNISOLONE [Concomitant]
  11. OMEPRAZOLE [Concomitant]

REACTIONS (4)
  - ALANINE AMINOTRANSFERASE INCREASED [None]
  - EPILEPSY [None]
  - GAMMA-GLUTAMYLTRANSFERASE INCREASED [None]
  - LIVER FUNCTION TEST ABNORMAL [None]
